FAERS Safety Report 8564719-3 (Version None)
Quarter: 2012Q3

REPORT INFORMATION
  Report Type: 
  Country: None (occurrence: None)
  Receive Date: 20120803
  Receipt Date: 20120730
  Transmission Date: 20120928
  Serious: Yes (Other)
  Sender: FDA-Public Use
  Company Number: US-ABBOTT-12P-163-0958621-00

PATIENT
  Sex: Female
  Weight: 59.02 kg

DRUGS (10)
  1. FISH OIL [Concomitant]
     Indication: SUPPLEMENTATION THERAPY
  2. AZATHIOPRINE [Concomitant]
     Indication: CROHN'S DISEASE
  3. PRESAVISION [Concomitant]
     Indication: MACULAR DEGENERATION
  4. DILTIAZEM [Concomitant]
     Indication: HYPERTENSION
  5. PRESAVISION [Concomitant]
     Indication: VITAMIN SUPPLEMENTATION
  6. SLOW RELEASE IRON [Concomitant]
     Indication: MINERAL SUPPLEMENTATION
  7. GLUCOSAMINE/CHONDROITIN [Concomitant]
     Indication: PRODUCT USED FOR UNKNOWN INDICATION
  8. ESTRADIAL [Concomitant]
     Indication: HORMONE REPLACEMENT THERAPY
  9. VITAMIN D [Concomitant]
     Indication: VITAMIN SUPPLEMENTATION
  10. HUMIRA [Suspect]
     Indication: CROHN'S DISEASE

REACTIONS (8)
  - PYREXIA [None]
  - SQUAMOUS CELL CARCINOMA OF SKIN [None]
  - PAIN [None]
  - SQUAMOUS CELL CARCINOMA [None]
  - PAIN IN EXTREMITY [None]
  - BLOOD BLISTER [None]
  - CHILLS [None]
  - SKIN DISORDER [None]
